FAERS Safety Report 7865449-3 (Version None)
Quarter: 2011Q4

REPORT INFORMATION
  Report Type: 
  Country: None (occurrence: None)
  Receive Date: 20111028
  Receipt Date: 20101230
  Transmission Date: 20120403
  Serious: No
  Sender: FDA-Public Use
  Company Number: US-GLAXOSMITHKLINE-A0902051A

PATIENT
  Age: 50 Year
  Sex: Female

DRUGS (2)
  1. INHALER [Concomitant]
  2. ADVAIR DISKUS 100/50 [Suspect]
     Indication: ASTHMA
     Route: 055

REACTIONS (6)
  - SINUS OPERATION [None]
  - CHEST DISCOMFORT [None]
  - WHEEZING [None]
  - DYSPNOEA [None]
  - COUGH [None]
  - THROAT IRRITATION [None]
